FAERS Safety Report 17125504 (Version 2)
Quarter: 2020Q3

REPORT INFORMATION
  Report Type: Report from Study
  Country: FR (occurrence: FR)
  Receive Date: 20191207
  Receipt Date: 20200706
  Transmission Date: 20201102
  Serious: No
  Sender: FDA-Public Use
  Company Number: FR-ROCHE-2481480

PATIENT
  Sex: Female

DRUGS (1)
  1. BLINDED OLAPARIB [Suspect]
     Active Substance: OLAPARIB
     Indication: CERVIX CARCINOMA
     Dosage: DATE OF LAST ADMINISTRATION BEFORE EVENT : 28/NOV/2018
     Route: 048
     Dates: start: 20161124

REACTIONS (1)
  - Intraductal proliferative breast lesion [Recovered/Resolved]

NARRATIVE: CASE EVENT DATE: 20190621
